FAERS Safety Report 7931600-X (Version None)
Quarter: 2011Q4

REPORT INFORMATION
  Report Type: 
  Country: None (occurrence: None)
  Receive Date: 20111121
  Receipt Date: 20111110
  Transmission Date: 20120403
  Serious: Yes (Hospitalization)
  Sender: FDA-Public Use
  Company Number: US-BAYER-2011-075412

PATIENT
  Age: 45 Year
  Sex: Female

DRUGS (3)
  1. MOTRIN [Concomitant]
     Indication: PAIN
  2. YASMIN [Suspect]
     Dosage: UNK
     Dates: start: 20010801, end: 20010901
  3. NAPROXEN (ALEVE) [Concomitant]
     Indication: PAIN

REACTIONS (4)
  - INJURY [None]
  - DEEP VEIN THROMBOSIS [None]
  - THROMBOSIS [None]
  - PAIN [None]
